FAERS Safety Report 21856679 (Version 2)
Quarter: 2023Q1

REPORT INFORMATION
  Report Type: Report from Study
  Country: US (occurrence: US)
  Receive Date: 20230113
  Receipt Date: 20230213
  Transmission Date: 20230417
  Serious: No
  Sender: FDA-Public Use
  Company Number: US-ACADIA PHARMACEUTICALS INC.-ACA-2022-PIM-004458

PATIENT
  Age: 75 Year
  Sex: Male

DRUGS (20)
  1. NUPLAZID [Suspect]
     Active Substance: PIMAVANSERIN TARTRATE
     Indication: Parkinson^s disease psychosis
     Dosage: 34 MILLIGRAM, QD
     Route: 048
     Dates: start: 20221214, end: 20230118
  2. NUPLAZID [Suspect]
     Active Substance: PIMAVANSERIN TARTRATE
     Dosage: 34 MILLIGRAM, QD
     Route: 048
     Dates: end: 20230203
  3. ALBUTEROL SULFATE [Concomitant]
     Active Substance: ALBUTEROL SULFATE
  4. AMLODIPINE [Concomitant]
     Active Substance: AMLODIPINE BESYLATE
  5. ARICEPT [Concomitant]
     Active Substance: DONEPEZIL HYDROCHLORIDE
  6. ASPIRIN [Concomitant]
     Active Substance: ASPIRIN
  7. BASAGLAR KWIKPEN [Concomitant]
     Active Substance: INSULIN GLARGINE
  8. BUDESONIDE\FORMOTEROL\GLYCOPYRRONIUM [Concomitant]
     Active Substance: BUDESONIDE\FORMOTEROL\GLYCOPYRRONIUM
  9. CARVEDILOL [Concomitant]
     Active Substance: CARVEDILOL
  10. CLONAZEPAM [Concomitant]
     Active Substance: CLONAZEPAM
  11. CLONIDINE [Concomitant]
     Active Substance: CLONIDINE
  12. DIGOXIN [Concomitant]
     Active Substance: DIGOXIN
  13. DULOXETINE [Concomitant]
     Active Substance: DULOXETINE
  14. FUROSEMIDE [Concomitant]
     Active Substance: FUROSEMIDE
  15. LEVOTHYROXINE [Concomitant]
     Active Substance: LEVOTHYROXINE
  16. LOSARTAN [Concomitant]
     Active Substance: LOSARTAN
  17. NOVOLOG [Concomitant]
     Active Substance: INSULIN ASPART
  18. OZEMPIC [Concomitant]
     Active Substance: SEMAGLUTIDE
  19. PRIMIDONE [Concomitant]
     Active Substance: PRIMIDONE
  20. ATORVASTATIN [Concomitant]
     Active Substance: ATORVASTATIN

REACTIONS (2)
  - Product dose omission issue [Not Recovered/Not Resolved]
  - Emotional disorder [Recovered/Resolved]

NARRATIVE: CASE EVENT DATE: 20230203
